FAERS Safety Report 7029481-4 (Version None)
Quarter: 2010Q4

REPORT INFORMATION
  Report Type: 
  Country: None (occurrence: None)
  Receive Date: 20101005
  Receipt Date: 20100928
  Transmission Date: 20110411
  Serious: Yes (Hospitalization)
  Sender: FDA-Public Use
  Company Number: US-AMGEN-KDL441840

PATIENT
  Sex: Female

DRUGS (3)
  1. ENBREL [Suspect]
     Indication: RHEUMATOID ARTHRITIS
     Route: 058
  2. HUMIRA [Concomitant]
  3. METHOTREXATE [Concomitant]

REACTIONS (8)
  - ARTHRITIS [None]
  - CARPAL TUNNEL SYNDROME [None]
  - CHONDROCALCINOSIS PYROPHOSPHATE [None]
  - DRUG INEFFECTIVE [None]
  - INFLUENZA LIKE ILLNESS [None]
  - RHEUMATOID ARTHRITIS [None]
  - STOMATITIS [None]
  - TENDON RUPTURE [None]
